FAERS Safety Report 5857109-5 (Version None)
Quarter: 2008Q3

REPORT INFORMATION
  Report Type: 
  Country: None (occurrence: None)
  Receive Date: 20080825
  Receipt Date: 20080814
  Transmission Date: 20090109
  Serious: Yes (Other)
  Sender: FDA-Public Use
  Company Number: RU-BOEHRINGER INGELHEIM GMBH, GERMANY-2008-DE-04695DE

PATIENT
  Sex: Male
  Weight: 74 kg

DRUGS (6)
  1. TIOTROPIUM-BROMIDE [Suspect]
     Indication: CHRONIC OBSTRUCTIVE PULMONARY DISEASE
     Route: 055
     Dates: end: 20080718
  2. SALMETEROL (PLACEBO) [Suspect]
     Indication: CHRONIC OBSTRUCTIVE PULMONARY DISEASE
     Route: 055
     Dates: end: 20080718
  3. SALBUTAMOL [Concomitant]
     Indication: CHRONIC OBSTRUCTIVE PULMONARY DISEASE
     Route: 055
     Dates: start: 19960101
  4. ISOSORBIDE DINITRATE [Concomitant]
     Indication: MYOCARDIAL ISCHAEMIA
     Route: 048
     Dates: start: 19920101
  5. ACETYLSALICYLIC ACID SRT [Concomitant]
     Indication: MYOCARDIAL ISCHAEMIA
     Route: 048
     Dates: start: 19920101
  6. PENTOXIFYLLINE [Concomitant]
     Indication: ARTERIOSCLEROSIS
     Route: 048
     Dates: start: 19920101

REACTIONS (2)
  - CIRCULATORY COLLAPSE [None]
  - HYPOTENSION [None]
